FAERS Safety Report 4923485-0 (Version None)
Quarter: 2006Q1

REPORT INFORMATION
  Report Type: 
  Country: None (occurrence: None)
  Receive Date: 20060227
  Receipt Date: 20030324
  Transmission Date: 20060701
  Serious: Yes (Hospitalization)
  Sender: FDA-Public Use
  Company Number: US-BRISTOL-MYERS SQUIBB COMPANY-12203006

PATIENT
  Age: 58 Year
  Sex: Male

DRUGS (13)
  1. CISPLATIN [Suspect]
     Indication: NEOPLASM MALIGNANT
     Dosage: LAST DOSE PRIOR TO THE EVENT ON 06-JUL-2001
     Route: 042
     Dates: start: 20010615, end: 20010727
  2. CETUXIMAB [Suspect]
     Indication: NEOPLASM MALIGNANT
     Route: 042
     Dates: start: 20010615, end: 20010727
  3. DEXAMETHASONE SODIUM PHOSPHATE [Concomitant]
     Indication: PREMEDICATION
     Dates: start: 20010615
  4. ZOFRAN [Concomitant]
     Indication: PREMEDICATION
     Dates: start: 20010615
  5. MANNITOL [Concomitant]
     Indication: FLUID REPLACEMENT
     Dates: start: 20010615
  6. POTASSIUM CHLORIDE [Concomitant]
     Indication: FLUID REPLACEMENT
     Dates: start: 20010615
  7. BENADRYL [Concomitant]
     Indication: PREMEDICATION
     Dates: start: 20010615
  8. ULTRAM [Concomitant]
     Indication: PAIN
     Dates: start: 20010626
  9. SENOKOT [Concomitant]
     Indication: CONSTIPATION
     Dates: start: 20010625
  10. PROCRIT [Concomitant]
     Indication: ANAEMIA
     Route: 058
     Dates: start: 20010627
  11. AUGMENTIN '125' [Concomitant]
     Indication: INFECTION
     Dates: start: 20010623
  12. DIFLUCAN [Concomitant]
     Indication: ORAL CANDIDIASIS
     Dates: start: 20010613
  13. COUMADIN [Concomitant]
     Indication: PROPHYLAXIS
     Route: 048

REACTIONS (5)
  - BRONCHOSTENOSIS [None]
  - HAEMORRHAGE [None]
  - MALIGNANT NEOPLASM PROGRESSION [None]
  - PNEUMONIA [None]
  - THROMBOCYTOPENIA [None]
